FAERS Safety Report 24565417 (Version 2)
Quarter: 2024Q4

REPORT INFORMATION
  Report Type: Report from Study
  Country: CA (occurrence: CA)
  Receive Date: 20241030
  Receipt Date: 20241223
  Transmission Date: 20250115
  Serious: Yes (Hospitalization)
  Sender: ROCHE
  Company Number: CA-ROCHE-10000116107

PATIENT
  Age: 59 Year
  Sex: Male
  Weight: 87 kg

DRUGS (6)
  1. ACTEMRA [Suspect]
     Active Substance: TOCILIZUMAB
     Indication: Rheumatoid arthritis
     Dosage: DRUG DOSE FIRST ADMINISTERED IS 800 MG MILLIGRAM(S)
     Route: 042
     Dates: start: 20230926, end: 20240507
  2. ACTEMRA [Suspect]
     Active Substance: TOCILIZUMAB
     Dosage: DRUG DOSE FIRST ADMINISTERED IS 800 MG MILLIGRAM(S)
     Route: 042
     Dates: start: 20240731, end: 20240828
  3. FOLIC ACID [Concomitant]
     Active Substance: FOLIC ACID
  4. METHOTREXATE [Concomitant]
     Active Substance: METHOTREXATE
  5. ORENCIA [Concomitant]
     Active Substance: ABATACEPT
  6. PERINDOPRIL [Concomitant]
     Active Substance: PERINDOPRIL

REACTIONS (4)
  - Hepatic cirrhosis [Unknown]
  - Weight decreased [Unknown]
  - Wound infection [Recovered/Resolved]
  - Cellulitis [Recovered/Resolved]

NARRATIVE: CASE EVENT DATE: 20240101
